FAERS Safety Report 16954778 (Version 1)
Quarter: 2019Q4

REPORT INFORMATION
  Report Type: Spontaneous
  Country: NL (occurrence: NL)
  Receive Date: 20191024
  Receipt Date: 20191024
  Transmission Date: 20200122
  Serious: Yes (Other)
  Sender: FDA-Public Use
  Company Number: NL-TEVA-2014-13513

PATIENT
  Age: 37 Year
  Sex: Female

DRUGS (2)
  1. AMOXICILLIN. [Interacting]
     Active Substance: AMOXICILLIN
     Indication: GINGIVITIS
     Dosage: 500 MILLIGRAM DAILY; 500 MG, DAILY
     Route: 048
     Dates: start: 20140522
  2. METRONIDAZOLE. [Suspect]
     Active Substance: METRONIDAZOLE
     Indication: GINGIVITIS
     Dosage: 500 MILLIGRAM DAILY; 500 MG, DAILY
     Route: 048
     Dates: start: 20140522, end: 20140526

REACTIONS (3)
  - Depressed mood [Recovered/Resolved]
  - Drug interaction [Recovered/Resolved]
  - Agitation [Recovered/Resolved]

NARRATIVE: CASE EVENT DATE: 20140525
